FAERS Safety Report 8282485-6 (Version None)
Quarter: 2012Q2

REPORT INFORMATION
  Report Type: 
  Country: None (occurrence: None)
  Receive Date: 20120413
  Receipt Date: 20120410
  Transmission Date: 20120825
  Serious: Yes (Life-Threatening, Hospitalization, Other)
  Sender: FDA-Public Use
  Company Number: BR-ABBOTT-12P-020-0921183-00

PATIENT
  Sex: Male
  Weight: 90 kg

DRUGS (3)
  1. DEPAKOTE [Suspect]
     Indication: DEPRESSION
     Dates: start: 20120101, end: 20120402
  2. DEPAKOTE [Suspect]
     Indication: DEPRESSION
     Dates: start: 20110101, end: 20120101
  3. SERTRALINE HYDROCHLORIDE [Concomitant]
     Indication: DEPRESSION
     Dates: start: 20110101, end: 20120402

REACTIONS (11)
  - INTENTIONAL DRUG MISUSE [None]
  - AGITATION [None]
  - SUICIDE ATTEMPT [None]
  - LOSS OF CONSCIOUSNESS [None]
  - LIVER DISORDER [None]
  - SOMNOLENCE [None]
  - PARTIAL SEIZURES [None]
  - DEPRESSION [None]
  - COAGULOPATHY [None]
  - COMA [None]
  - NERVOUSNESS [None]
